FAERS Safety Report 6064703-8 (Version None)
Quarter: 2009Q1

REPORT INFORMATION
  Report Type: 
  Country: None (occurrence: None)
  Receive Date: 20090204
  Receipt Date: 20080716
  Transmission Date: 20090719
  Serious: No
  Sender: FDA-Public Use
  Company Number: A0735832A

PATIENT
  Age: 78 Year
  Sex: Male

DRUGS (8)
  1. ARIXTRA [Suspect]
     Dosage: 7.5MGML PER DAY
     Route: 058
     Dates: start: 20080601, end: 20080624
  2. ZETIA [Concomitant]
  3. PAROXETINE HCL [Concomitant]
  4. FINASTERIDE [Concomitant]
  5. UNKNOWN MEDICATION [Concomitant]
     Route: 048
  6. DOXAZOSIN MESYLATE [Concomitant]
  7. PLAVIX [Concomitant]
  8. FOLIC ACID [Concomitant]

REACTIONS (1)
  - SKIN HAEMORRHAGE [None]
